FAERS Safety Report 6708071-4 (Version None)
Quarter: 2010Q2

REPORT INFORMATION
  Report Type: 
  Country: None (occurrence: None)
  Receive Date: 20100503
  Receipt Date: 20091019
  Transmission Date: 20101027
  Serious: No
  Sender: FDA-Public Use
  Company Number: US-ASTRAZENECA-2009SE21001

PATIENT
  Age: 781 Month
  Sex: Female
  Weight: 68 kg

DRUGS (3)
  1. NEXIUM [Suspect]
     Route: 048
  2. ATIVAN [Concomitant]
  3. VIT D [Concomitant]

REACTIONS (1)
  - VITAMIN D DEFICIENCY [None]
